FAERS Safety Report 4429374-2 (Version None)
Quarter: 2004Q3

REPORT INFORMATION
  Report Type: 
  Country: None (occurrence: None)
  Receive Date: 20040816
  Receipt Date: 20040707
  Transmission Date: 20050211
  Serious: No
  Sender: FDA-Public Use
  Company Number: 2004-117262-NL

PATIENT
  Age: 61 Year
  Sex: Female

DRUGS (3)
  1. MIRTAZAPINE [Suspect]
     Indication: DEPRESSION
     Dosage: 30 MG QD  ORAL
     Route: 048
  2. ZALEPLON [Concomitant]
  3. BUSPIRONE [Concomitant]

REACTIONS (1)
  - SUICIDAL IDEATION [None]
